FAERS Safety Report 8494286-4 (Version None)
Quarter: 2012Q2

REPORT INFORMATION
  Report Type: 
  Country: None (occurrence: None)
  Receive Date: 20120627
  Receipt Date: 20120615
  Transmission Date: 20120825
  Serious: Yes (Hospitalization)
  Sender: FDA-Public Use
  Company Number: 2012SP033718

PATIENT
  Age: 28 Year
  Sex: Female
  Weight: 43.5 kg

DRUGS (4)
  1. GANIRELIX ACETATE INJECTION [Suspect]
     Indication: PREVENTION OF PREMATURE OVULATION
     Dosage: 0.25 MG; SC
     Route: 058
     Dates: start: 20110226, end: 20110228
  2. HMG [Concomitant]
  3. FOLYRMON-P [Concomitant]
  4. GONALE F PEN [Concomitant]

REACTIONS (4)
  - PROTEINURIA [None]
  - GESTATIONAL HYPERTENSION [None]
  - CAESAREAN SECTION [None]
  - MATERNAL EXPOSURE DURING PREGNANCY [None]
